FAERS Safety Report 9351587 (Version 1)
Quarter: 2013Q2

REPORT INFORMATION
  Report Type: Spontaneous
  Country: BR (occurrence: BR)
  Receive Date: 20130617
  Receipt Date: 20130617
  Transmission Date: 20140414
  Serious: Yes (Death, Hospitalization)
  Sender: FDA-Public Use
  Company Number: BR-B.I. PHARMACEUTICALS,INC./RIDGEFIELD-2013-BR-00707BR

PATIENT
  Age: 67 Year
  Sex: Female

DRUGS (6)
  1. PRADAXA [Suspect]
     Indication: CEREBROVASCULAR ACCIDENT PROPHYLAXIS
     Dosage: 300 MG
     Route: 048
     Dates: start: 20130117, end: 20130207
  2. ATENOLOL [Concomitant]
     Indication: HEART RATE IRREGULAR
     Dosage: 50 MG
     Route: 048
  3. LOSARTAN [Concomitant]
     Indication: BLOOD PRESSURE FLUCTUATION
     Dosage: 150 MG
     Route: 048
  4. HYGROTON [Concomitant]
     Indication: BLOOD PRESSURE FLUCTUATION
     Dosage: 12.5 MG
     Route: 048
  5. AAS [Concomitant]
     Indication: ANTICOAGULANT THERAPY
     Dosage: 100 MG
     Route: 048
     Dates: start: 20130117
  6. ATORVASTATINA [Concomitant]
     Indication: CAROTID ARTERY STENOSIS
     Dosage: 20 MG
     Dates: start: 20130117

REACTIONS (5)
  - Haemorrhage [Fatal]
  - Shock haemorrhagic [Fatal]
  - Fatigue [Not Recovered/Not Resolved]
  - Dizziness [Not Recovered/Not Resolved]
  - Blood urine present [Not Recovered/Not Resolved]
